FAERS Safety Report 24576120 (Version 1)
Quarter: 2024Q4

REPORT INFORMATION
  Report Type: Spontaneous
  Country: US (occurrence: None)
  Receive Date: 20241102
  Receipt Date: 20241102
  Transmission Date: 20250115
  Serious: Yes (Hospitalization)
  Sender: Public
  Company Number: None

PATIENT
  Age: 45 Year
  Sex: Male
  Weight: 85.05 kg

DRUGS (8)
  1. QELBREE [Suspect]
     Active Substance: VILOXAZINE HYDROCHLORIDE
     Indication: Attention deficit hyperactivity disorder
     Dosage: OTHER QUANTITY : 1 CAPSULE(S);?FREQUENCY : DAILY;?
     Route: 048
     Dates: start: 20240515, end: 20240913
  2. SERTRALINE [Concomitant]
     Active Substance: SERTRALINE HYDROCHLORIDE
  3. simvastation [Concomitant]
  4. LOSARTAN [Concomitant]
     Active Substance: LOSARTAN
  5. FINASTERIDE [Concomitant]
     Active Substance: FINASTERIDE
  6. IBUPROFEN [Concomitant]
     Active Substance: IBUPROFEN
  7. FISH OIL [Concomitant]
     Active Substance: FISH OIL
  8. Ashwaganda root extract [Concomitant]

REACTIONS (9)
  - Headache [None]
  - Product use issue [None]
  - Drug ineffective [None]
  - Blood pressure increased [None]
  - Nausea [None]
  - Vomiting [None]
  - Heart rate increased [None]
  - Heart rate decreased [None]
  - Blood pressure decreased [None]

NARRATIVE: CASE EVENT DATE: 20240826
